FAERS Safety Report 5879906-2 (Version None)
Quarter: 2008Q3

REPORT INFORMATION
  Report Type: 
  Country: None (occurrence: None)
  Receive Date: 20080911
  Receipt Date: 20080911
  Transmission Date: 20090109
  Serious: Yes (Other)
  Sender: FDA-Public Use
  Company Number: None

PATIENT
  Sex: Female
  Weight: 82.5547 kg

DRUGS (1)
  1. ACTONEL [Suspect]
     Indication: BONE DISORDER
     Dosage: 150 MG. ONE PER MONTH ONE TAB
     Dates: start: 20080603

REACTIONS (4)
  - CONTUSION [None]
  - GROIN PAIN [None]
  - OEDEMA PERIPHERAL [None]
  - RASH [None]
